FAERS Safety Report 12477376 (Version 1)
Quarter: 2016Q2

REPORT INFORMATION
  Report Type: Spontaneous
  Country: US (occurrence: US)
  Receive Date: 20160617
  Receipt Date: 20160617
  Transmission Date: 20160815
  Serious: No
  Sender: FDA-Public Use
  Company Number: US-009507513-1606USA004799

PATIENT
  Age: 76 Year
  Sex: Female

DRUGS (1)
  1. FOSAMAX [Suspect]
     Active Substance: ALENDRONATE SODIUM
     Indication: OSTEOPOROSIS
     Dosage: DOSE: UNKNOWN, QW
     Route: 048
     Dates: start: 20160505, end: 20160526

REACTIONS (6)
  - Dry skin [Not Recovered/Not Resolved]
  - Onychoclasis [Not Recovered/Not Resolved]
  - Erythema [Not Recovered/Not Resolved]
  - Skin exfoliation [Not Recovered/Not Resolved]
  - Skin texture abnormal [Not Recovered/Not Resolved]
  - Skin atrophy [Not Recovered/Not Resolved]

NARRATIVE: CASE EVENT DATE: 201605
